FAERS Safety Report 7364903-0 (Version None)
Quarter: 2011Q1

REPORT INFORMATION
  Report Type: 
  Country: None (occurrence: None)
  Receive Date: 20110321
  Receipt Date: 20100803
  Transmission Date: 20110831
  Serious: Yes (Hospitalization, Other)
  Sender: FDA-Public Use
  Company Number: US-BAYER-201025159NA

PATIENT
  Sex: Female
  Weight: 88.636 kg

DRUGS (23)
  1. YAZ [Suspect]
     Indication: CONTRACEPTION
     Dosage: UNK
     Route: 048
     Dates: start: 20060624, end: 20080615
  2. DIFLUCAN [Concomitant]
  3. GLUCOPHAGE [Concomitant]
  4. UNKNOWN [Concomitant]
  5. LEVORA 0.15/30-21 [Concomitant]
  6. NAPROXEN [Concomitant]
  7. MICROGESTIN 1.5/30 [Concomitant]
  8. LEVOTHYROXINE SODIUM [Concomitant]
  9. JUNEL FE [Concomitant]
  10. UNKNOWN [Concomitant]
  11. LEVOXYL [Concomitant]
  12. SKELAXIN [Concomitant]
  13. LEVOTHROID [Concomitant]
  14. PRILOSEC [Concomitant]
  15. CLARITHROMYCIN [Concomitant]
  16. CEFPROZIL [Concomitant]
  17. YASMIN [Suspect]
     Indication: CONTRACEPTION
     Dosage: UNK
     Dates: start: 20020704
  18. SYNTHROID [Concomitant]
  19. BIAXIN [Concomitant]
  20. PREVACID [Concomitant]
  21. SPIRONOLACTONE [Concomitant]
  22. HYDROCODONE BITARTRATE [Concomitant]
  23. CEFUROXIME [Concomitant]

REACTIONS (9)
  - ABDOMINAL PAIN [None]
  - DIARRHOEA [None]
  - HIATUS HERNIA [None]
  - CHOLECYSTITIS CHRONIC [None]
  - ABDOMINAL PAIN UPPER [None]
  - GASTROOESOPHAGEAL REFLUX DISEASE [None]
  - CHEST PAIN [None]
  - DYSPEPSIA [None]
  - CHEST DISCOMFORT [None]
